FAERS Safety Report 10547361 (Version 3)
Quarter: 2014Q4

REPORT INFORMATION
  Report Type: Spontaneous
  Country: FR (occurrence: FR)
  Receive Date: 20141028
  Receipt Date: 20141128
  Transmission Date: 20150529
  Serious: Yes (Hospitalization, Other)
  Sender: FDA-Public Use
  Company Number: FR-AMGEN-FRASP2014082535

PATIENT
  Age: 79 Year
  Sex: Female

DRUGS (4)
  1. XGEVA [Suspect]
     Active Substance: DENOSUMAB
     Indication: METASTASES TO BONE
     Dosage: UNK
     Route: 065
  2. TARCEVA [Concomitant]
     Active Substance: ERLOTINIB HYDROCHLORIDE
     Indication: SQUAMOUS CELL CARCINOMA OF LUNG
     Dosage: UNK
     Dates: end: 201409
  3. TARCEVA [Concomitant]
     Active Substance: ERLOTINIB HYDROCHLORIDE
     Indication: METASTASES TO CENTRAL NERVOUS SYSTEM
  4. TARCEVA [Concomitant]
     Active Substance: ERLOTINIB HYDROCHLORIDE
     Indication: VIITH NERVE PARALYSIS

REACTIONS (8)
  - Liver disorder [Unknown]
  - Pain in jaw [Recovering/Resolving]
  - Metastases to bone [Unknown]
  - Bone swelling [Recovering/Resolving]
  - Malignant neoplasm progression [Unknown]
  - Osteosclerosis [Unknown]
  - Metastases to spine [Unknown]
  - Skin lesion [Unknown]
